FAERS Safety Report 9656137 (Version 1)
Quarter: 2013Q4

REPORT INFORMATION
  Report Type: Report from Study
  Country: BR (occurrence: BR)
  Receive Date: 20131030
  Receipt Date: 20131030
  Transmission Date: 20140711
  Serious: Yes (Other)
  Sender: FDA-Public Use
  Company Number: PHHY2013BR121006

PATIENT
  Sex: Female
  Weight: 60 kg

DRUGS (5)
  1. EXELON [Suspect]
     Dosage: 1.5 MG, DAILY
     Dates: start: 201307
  2. EXELON [Suspect]
     Dosage: 3 MG, DAILY
     Dates: end: 201308
  3. COMFORT                            /00735901/ [Concomitant]
     Dosage: UNK UKN, UNK
  4. AAS [Concomitant]
     Dosage: UNK UKN, UNK
  5. MATRIX [Concomitant]
     Dosage: UNK UKN, UNK

REACTIONS (2)
  - Aortic aneurysm [Recovered/Resolved]
  - Abdominal pain upper [Recovered/Resolved]
